FAERS Safety Report 5121204-9 (Version None)
Quarter: 2006Q4

REPORT INFORMATION
  Report Type: 
  Country: None (occurrence: None)
  Receive Date: 20061002
  Receipt Date: 20060921
  Transmission Date: 20070319
  Serious: Yes (Hospitalization)
  Sender: FDA-Public Use
  Company Number: US-2006-028319

PATIENT
  Age: 29 Year
  Sex: Female

DRUGS (1)
  1. YAZ [Suspect]
     Indication: CONTRACEPTION
     Dosage: 1 TAB(S), 1X/DAY; ORAL
     Route: 048

REACTIONS (6)
  - INSOMNIA [None]
  - MOOD SWINGS [None]
  - MUSCLE TIGHTNESS [None]
  - MYALGIA [None]
  - PALPITATIONS [None]
  - THROMBOSIS [None]
